FAERS Safety Report 20231478 (Version 1)
Quarter: 2021Q4

REPORT INFORMATION
  Report Type: Spontaneous
  Country: CN (occurrence: None)
  Receive Date: 20211227
  Receipt Date: 20211227
  Transmission Date: 20220303
  Serious: Yes (Other)
  Sender: FDA-Public Use
  Company Number: CN-ROCHE-2981528

PATIENT
  Age: 46 Year
  Sex: Female

DRUGS (11)
  1. BEVACIZUMAB [Suspect]
     Active Substance: BEVACIZUMAB
     Indication: Cancer surgery
     Route: 048
  2. BEVACIZUMAB [Suspect]
     Active Substance: BEVACIZUMAB
     Route: 048
     Dates: start: 20200623
  3. BEVACIZUMAB [Suspect]
     Active Substance: BEVACIZUMAB
     Route: 065
     Dates: start: 20200718
  4. CAPECITABINE [Concomitant]
     Active Substance: CAPECITABINE
     Indication: Cancer surgery
     Route: 048
  5. CAPECITABINE [Concomitant]
     Active Substance: CAPECITABINE
     Dosage: XELOX+BEV: 25-SEP-2019 TO 07-NOV-2019, 23-DEC-2019 TO 22-MAR-2020
     Route: 048
  6. CAPECITABINE [Concomitant]
     Active Substance: CAPECITABINE
     Route: 065
  7. CAPECITABINE [Concomitant]
     Active Substance: CAPECITABINE
     Dosage: XELOX+BEV
     Route: 048
     Dates: start: 20200623
  8. CAPECITABINE [Concomitant]
     Active Substance: CAPECITABINE
     Dosage: CAP + BEV
     Route: 065
     Dates: start: 20200718
  9. OXALIPLATIN [Concomitant]
     Active Substance: OXALIPLATIN
     Indication: Cancer surgery
     Dosage: XELOX: 07-SEP-2019, 29-NOV-2019
     Route: 041
  10. OXALIPLATIN [Concomitant]
     Active Substance: OXALIPLATIN
     Dosage: XELOX+BEV: 25-SEP-2019 TO 07-NOV-2019, 23-DEC-2019 TO 22-MAR-2020
     Route: 041
  11. OXALIPLATIN [Concomitant]
     Active Substance: OXALIPLATIN
     Dosage: XELOX+BEV
     Route: 041
     Dates: start: 20200623

REACTIONS (6)
  - Gastrointestinal disorder [Unknown]
  - Myelosuppression [Recovering/Resolving]
  - Hepatic function abnormal [Recovering/Resolving]
  - Palmar-plantar erythrodysaesthesia syndrome [Unknown]
  - Pigmentation disorder [Unknown]
  - Neurotoxicity [Unknown]
